FAERS Safety Report 8162642-X (Version None)
Quarter: 2012Q1

REPORT INFORMATION
  Report Type: 
  Country: None (occurrence: None)
  Receive Date: 20120103
  Receipt Date: 20110927
  Transmission Date: 20120608
  Serious: No
  Sender: FDA-Public Use
  Company Number: AE-2011-001841

PATIENT
  Sex: Male

DRUGS (3)
  1. RIBAVIRIN [Concomitant]
  2. INCIVEK [Suspect]
     Dates: start: 20110707
  3. PEG-INTRON [Concomitant]

REACTIONS (3)
  - INSOMNIA [None]
  - INJECTION SITE RASH [None]
  - PRURITUS [None]
